FAERS Safety Report 6191241-4 (Version None)
Quarter: 2009Q2

REPORT INFORMATION
  Report Type: 
  Country: None (occurrence: None)
  Receive Date: 20090513
  Receipt Date: 20090513
  Transmission Date: 20091009
  Serious: Yes (Disabling)
  Sender: FDA-Public Use
  Company Number: None

PATIENT
  Age: 58 Year
  Sex: Female
  Weight: 73.4827 kg

DRUGS (2)
  1. ABILIFY [Suspect]
     Dosage: DON'T RECALL TWICE A DAY? MOUTH
     Route: 048
     Dates: start: 20080608
  2. GEODON [Suspect]
     Dosage: DON'T RECALL TWICE A DAY MOUTH
     Route: 048
     Dates: start: 20081001

REACTIONS (4)
  - ANXIETY [None]
  - MASTICATION DISORDER [None]
  - POSTURE ABNORMAL [None]
  - STOMATITIS [None]
